FAERS Safety Report 21853180 (Version 2)
Quarter: 2023Q1

REPORT INFORMATION
  Report Type: Report from Study
  Country: US (occurrence: US)
  Receive Date: 20230112
  Receipt Date: 20230318
  Transmission Date: 20230417
  Serious: No
  Sender: FDA-Public Use
  Company Number: US-ABBVIE-4232046

PATIENT
  Sex: Female

DRUGS (1)
  1. SKYRIZI [Suspect]
     Active Substance: RISANKIZUMAB-RZAA
     Indication: Psoriasis
     Route: 058
     Dates: start: 20200421

REACTIONS (8)
  - Psoriasis [Not Recovered/Not Resolved]
  - Impaired healing [Not Recovered/Not Resolved]
  - Memory impairment [Not Recovered/Not Resolved]
  - Drug ineffective [Unknown]
  - Bronchitis [Unknown]
  - Irritability [Not Recovered/Not Resolved]
  - Thermal burn [Recovering/Resolving]
  - Malaise [Unknown]
